FAERS Safety Report 23131809 (Version 1)
Quarter: 2023Q4

REPORT INFORMATION
  Report Type: Report from Study
  Country: US (occurrence: US)
  Receive Date: 20231101
  Receipt Date: 20231101
  Transmission Date: 20240109
  Serious: Yes (Other)
  Sender: FDA-Public Use
  Company Number: US-ABBVIE-5474054

PATIENT
  Sex: Male

DRUGS (3)
  1. VENCLEXTA [Suspect]
     Active Substance: VENETOCLAX
     Indication: Product used for unknown indication
     Route: 048
  2. VANFLYTA [Concomitant]
     Active Substance: QUIZARTINIB DIHYDROCHLORIDE
     Indication: Acute myeloid leukaemia
     Dates: start: 20231010
  3. DACOGEN [Suspect]
     Active Substance: DECITABINE
     Indication: Product used for unknown indication
     Route: 042

REACTIONS (5)
  - White blood cell count abnormal [Unknown]
  - Full blood count decreased [Unknown]
  - Haemoglobin abnormal [Unknown]
  - Platelet count abnormal [Unknown]
  - Poor quality sleep [Unknown]
